FAERS Safety Report 9150033 (Version 1)
Quarter: 2013Q1

REPORT INFORMATION
  Report Type: Spontaneous
  Country: US (occurrence: US)
  Receive Date: 20130308
  Receipt Date: 20130308
  Transmission Date: 20140127
  Serious: No
  Sender: FDA-Public Use
  Company Number: US-ENDO PHARMACEUTICALS INC.-OPCR20120878

PATIENT
  Sex: Male

DRUGS (4)
  1. OPANA ER [Suspect]
     Indication: BACK PAIN
     Route: 048
     Dates: start: 20120327
  2. OPANA ER [Suspect]
     Indication: INTERVERTEBRAL DISC DEGENERATION
  3. OPANA ER [Concomitant]
     Indication: BACK PAIN
     Route: 048
     Dates: start: 201012, end: 20120327
  4. OPANA ER [Concomitant]
     Indication: INTERVERTEBRAL DISC DEGENERATION

REACTIONS (4)
  - Renal pain [Not Recovered/Not Resolved]
  - Migraine [Not Recovered/Not Resolved]
  - Micturition urgency [Not Recovered/Not Resolved]
  - Urinary retention [Not Recovered/Not Resolved]
